FAERS Safety Report 19590666 (Version 1)
Quarter: 2021Q3

REPORT INFORMATION
  Report Type: Spontaneous
  Country: GB (occurrence: GB)
  Receive Date: 20210721
  Receipt Date: 20210721
  Transmission Date: 20211014
  Serious: Yes (Other)
  Sender: FDA-Public Use
  Company Number: GB-PFIZER INC-2021855102

PATIENT
  Age: 43 Year
  Sex: Male

DRUGS (1)
  1. SOLU?MEDRONE [Suspect]
     Active Substance: METHYLPREDNISOLONE SODIUM SUCCINATE
     Dosage: UNK, WEEKLY

REACTIONS (1)
  - Ischaemic stroke [Unknown]
